FAERS Safety Report 6176700-2 (Version None)
Quarter: 2009Q2

REPORT INFORMATION
  Report Type: 
  Country: None (occurrence: None)
  Receive Date: 20090501
  Receipt Date: 20090421
  Transmission Date: 20091009
  Serious: Yes (Death, Other)
  Sender: FDA-Public Use
  Company Number: US-PFIZER INC-2006027531

PATIENT
  Sex: Female
  Weight: 79 kg

DRUGS (12)
  1. CELEBREX [Suspect]
     Indication: OSTEOARTHRITIS
     Dosage: 200 MG, 1X/DAY
     Route: 065
     Dates: start: 20050101
  2. PREDNISONE [Suspect]
     Indication: IDIOPATHIC PULMONARY FIBROSIS
     Dosage: 11 MG, UNK
     Route: 065
     Dates: start: 20040101
  3. ACTIMMUNE [Concomitant]
     Route: 065
  4. NEURONTIN [Concomitant]
     Dosage: UNK
     Route: 065
  5. PRAVACHOL [Concomitant]
     Route: 065
  6. FOSAMAX [Concomitant]
     Dosage: UNK
     Route: 065
  7. PREVACID [Concomitant]
     Dosage: UNK
     Route: 065
  8. ACETYLCYSTEINE [Concomitant]
     Dosage: UNK
     Route: 065
  9. IMURAN [Concomitant]
     Dosage: UNK
     Route: 065
  10. VITAMIN B6 [Concomitant]
     Dosage: UNK
     Route: 065
  11. CALCIUM CARBONATE [Concomitant]
     Dosage: UNK
     Route: 065
  12. PREDNISONE ACETATE [Concomitant]
     Dosage: UNK
     Route: 055

REACTIONS (7)
  - CATARACT [None]
  - DEATH [None]
  - GLAUCOMA [None]
  - LUNG DISORDER [None]
  - OSTEOARTHRITIS [None]
  - PAIN [None]
  - SLEEP DISORDER [None]
